FAERS Safety Report 9121250 (Version 1)
Quarter: 2013Q1

REPORT INFORMATION
  Report Type: Spontaneous
  Country: SE (occurrence: SE)
  Receive Date: 20130225
  Receipt Date: 20130225
  Transmission Date: 20140127
  Serious: Yes (Other)
  Sender: FDA-Public Use
  Company Number: SE-ROCHE-1193891

PATIENT
  Age: 6 Year
  Sex: Male

DRUGS (7)
  1. XOLAIR [Suspect]
     Indication: ASTHMA
     Route: 058
     Dates: start: 20110404
  2. XOLAIR [Suspect]
     Route: 058
     Dates: end: 20110526
  3. SINGULAIR [Concomitant]
  4. AERIUS [Concomitant]
  5. SERETIDE [Concomitant]
     Route: 065
  6. MOVICOL [Concomitant]
     Route: 065
  7. AIROMIR [Concomitant]

REACTIONS (1)
  - Asthma [Recovered/Resolved]
